FAERS Safety Report 10707246 (Version 1)
Quarter: 2015Q1

REPORT INFORMATION
  Report Type: Spontaneous
  Country: US (occurrence: None)
  Receive Date: 20150112
  Receipt Date: 20150112
  Transmission Date: 20150721
  Serious: Yes (Life-Threatening, Disabling, Other)
  Sender: FDA-Public Use
  Company Number: None

PATIENT
  Sex: Female

DRUGS (1)
  1. CIPROFLOXACIN. [Suspect]
     Active Substance: CIPROFLOXACIN

REACTIONS (16)
  - Quality of life decreased [None]
  - Dysstasia [None]
  - Musculoskeletal disorder [None]
  - Bedridden [None]
  - Peripheral swelling [None]
  - Feeling hot [None]
  - Rheumatoid arthritis [None]
  - Pain [None]
  - Epstein-Barr virus infection [None]
  - Product quality issue [None]
  - Abasia [None]
  - Neuropathy peripheral [None]
  - Connective tissue disorder [None]
  - Loss of employment [None]
  - Carpal tunnel syndrome [None]
  - Muscle disorder [None]

NARRATIVE: CASE EVENT DATE: 20140110
